FAERS Safety Report 23057424 (Version 1)
Quarter: 2023Q4

REPORT INFORMATION
  Report Type: Spontaneous
  Country: US (occurrence: US)
  Receive Date: 20231012
  Receipt Date: 20231012
  Transmission Date: 20240110
  Serious: Yes (Other)
  Sender: FDA-Public Use
  Company Number: US-UNITED THERAPEUTICS-UNT-2023-028410

PATIENT
  Sex: Female

DRUGS (12)
  1. UNITUXIN [Suspect]
     Active Substance: DINUTUXIMAB
     Indication: Neuroblastoma
     Dosage: 17.5 MG/M2, CYCLICAL (CYCLE 1) (DAY2-DAY5)
     Route: 041
  2. UNITUXIN [Suspect]
     Active Substance: DINUTUXIMAB
     Dosage: 17.5 MG/M2, CYCLICAL (CYCLE 2) (DAY2-DAY5)
     Route: 041
  3. UNITUXIN [Suspect]
     Active Substance: DINUTUXIMAB
     Dosage: 17.5 MG/M2, CYCLICAL (CYCLE 3) (DAY2-DAY5)
     Route: 041
  4. UNITUXIN [Suspect]
     Active Substance: DINUTUXIMAB
     Dosage: 17.5 MG/M2, CYACLICAL (CYCLE 4) (DAY2-DAY5)
     Route: 041
  5. UNITUXIN [Suspect]
     Active Substance: DINUTUXIMAB
     Dosage: 17.5 MG/M2, CYCLICAL (CYCLE 5) (DAY2-DAY5)
     Route: 041
  6. GRANULOCYTE-MACROPHAGE COLONY-STIMULATING FACTOR [Concomitant]
     Active Substance: GRANULOCYTE-MACROPHAGE COLONY-STIMULATING FACTOR
     Indication: Neuroblastoma
     Dosage: 250 MCG/M2/DAY, CYCLICAL (CYCLE 1) (ON DAY 6, UNTIL A POST-NADIR ANC ? 2000/MM3)
     Route: 058
  7. GRANULOCYTE-MACROPHAGE COLONY-STIMULATING FACTOR [Concomitant]
     Active Substance: GRANULOCYTE-MACROPHAGE COLONY-STIMULATING FACTOR
     Dosage: 250 MCG/M2/DAY, CYCLICAL (CYCLE 2) (ON DAY 6, UNTIL A POST-NADIR ANC ? 2000/MM3)
     Route: 058
  8. GRANULOCYTE-MACROPHAGE COLONY-STIMULATING FACTOR [Concomitant]
     Active Substance: GRANULOCYTE-MACROPHAGE COLONY-STIMULATING FACTOR
     Dosage: 250 MCG/M2/DAY, CYCLICAL (CYCLE 3) (ON DAY 6, UNTIL A POST-NADIR ANC ? 2000/MM3)
     Route: 058
  9. GRANULOCYTE-MACROPHAGE COLONY-STIMULATING FACTOR [Concomitant]
     Active Substance: GRANULOCYTE-MACROPHAGE COLONY-STIMULATING FACTOR
     Dosage: 250 MCG/M2/DAY, CYCLICAL (CYCLE 4) (ON DAY 6, UNTIL A POST-NADIR ANC ? 2000/MM3)
     Route: 058
  10. GRANULOCYTE-MACROPHAGE COLONY-STIMULATING FACTOR [Concomitant]
     Active Substance: GRANULOCYTE-MACROPHAGE COLONY-STIMULATING FACTOR
     Dosage: 250 MCG/M2/DAY, CYCLICAL (CYCLE 5) (ON DAY 6, UNTIL A POST-NADIR ANC ? 2000/MM3)
     Route: 058
  11. DIPHENHYDRAMINE [Concomitant]
     Active Substance: DIPHENHYDRAMINE
     Indication: Product used for unknown indication
     Dosage: UNK
     Route: 065
  12. ACETAMINOPHEN [Concomitant]
     Active Substance: ACETAMINOPHEN
     Indication: Product used for unknown indication
     Dosage: UNK
     Route: 065

REACTIONS (2)
  - Thrombotic microangiopathy [Unknown]
  - Pulmonary alveolar haemorrhage [Unknown]
